FAERS Safety Report 21216221 (Version 5)
Quarter: 2022Q4

REPORT INFORMATION
  Report Type: Spontaneous
  Country: US (occurrence: US)
  Receive Date: 20220816
  Receipt Date: 20221213
  Transmission Date: 20230112
  Serious: Yes (Hospitalization, Other)
  Sender: FDA-Public Use
  Company Number: US-SA-SAC20220812001435

PATIENT
  Age: 46 Year
  Sex: Female
  Weight: 44.4 kg

DRUGS (76)
  1. AUBAGIO [Suspect]
     Active Substance: TERIFLUNOMIDE
     Indication: Multiple sclerosis
     Dosage: 1 DF, QD
     Route: 048
     Dates: start: 2017, end: 201904
  2. AUBAGIO [Suspect]
     Active Substance: TERIFLUNOMIDE
     Dosage: 14 DF, QD
     Route: 048
     Dates: start: 20191012
  3. TREPROSTINIL [Suspect]
     Active Substance: TREPROSTINIL
     Dosage: UNK
     Route: 042
  4. BOTOX [Concomitant]
     Active Substance: ONABOTULINUMTOXINA
     Dosage: 100 UNK
  5. BOTOX [Concomitant]
     Active Substance: ONABOTULINUMTOXINA
  6. VITAMIN B2 [Concomitant]
     Active Substance: RIBOFLAVIN
  7. COUMADIN [Concomitant]
     Active Substance: WARFARIN SODIUM
  8. COUMADIN [Concomitant]
     Active Substance: WARFARIN SODIUM
  9. CALCITRIOL [Concomitant]
     Active Substance: CALCITRIOL
  10. CALCITRIOL [Concomitant]
     Active Substance: CALCITRIOL
  11. REMODULIN [Concomitant]
     Active Substance: TREPROSTINIL
  12. EPINEPHRINE [Concomitant]
     Active Substance: EPINEPHRINE
  13. EPINEPHRINE [Concomitant]
     Active Substance: EPINEPHRINE
  14. SINGULAIR [Concomitant]
     Active Substance: MONTELUKAST SODIUM
  15. SINGULAIR [Concomitant]
     Active Substance: MONTELUKAST SODIUM
  16. ALLEGRA [Concomitant]
     Active Substance: FEXOFENADINE HYDROCHLORIDE
  17. ALLEGRA [Concomitant]
     Active Substance: FEXOFENADINE HYDROCHLORIDE
  18. XYZAL [Concomitant]
     Active Substance: LEVOCETIRIZINE DIHYDROCHLORIDE
  19. XYZAL [Concomitant]
     Active Substance: LEVOCETIRIZINE DIHYDROCHLORIDE
  20. OMEPRAZOLE [Concomitant]
     Active Substance: OMEPRAZOLE
  21. OMEPRAZOLE [Concomitant]
     Active Substance: OMEPRAZOLE
  22. XANAX [Concomitant]
     Active Substance: ALPRAZOLAM
  23. XANAX [Concomitant]
     Active Substance: ALPRAZOLAM
  24. CELECOXIB [Concomitant]
     Active Substance: CELECOXIB
  25. CELECOXIB [Concomitant]
     Active Substance: CELECOXIB
  26. TRILEPTAL [Concomitant]
     Active Substance: OXCARBAZEPINE
  27. TRILEPTAL [Concomitant]
     Active Substance: OXCARBAZEPINE
  28. REVATIO [Concomitant]
     Active Substance: SILDENAFIL CITRATE
  29. REVATIO [Concomitant]
     Active Substance: SILDENAFIL CITRATE
  30. HYDROCHLOROTHIAZIDE [Concomitant]
     Active Substance: HYDROCHLOROTHIAZIDE
  31. HYDROCHLOROTHIAZIDE [Concomitant]
     Active Substance: HYDROCHLOROTHIAZIDE
  32. VITAMIN D3 [Concomitant]
     Active Substance: CHOLECALCIFEROL
     Dosage: 1000 U
  33. VITAMIN D3 [Concomitant]
     Active Substance: CHOLECALCIFEROL
  34. NEURONTIN [Concomitant]
     Active Substance: GABAPENTIN
  35. NEURONTIN [Concomitant]
     Active Substance: GABAPENTIN
  36. TRACLEER [Concomitant]
     Active Substance: BOSENTAN
  37. IRON [Concomitant]
     Active Substance: IRON
  38. IRON [Concomitant]
     Active Substance: IRON
  39. ALDACTONE [Concomitant]
     Active Substance: SPIRONOLACTONE
  40. SILDENAFIL CITRATE [Concomitant]
     Active Substance: SILDENAFIL CITRATE
  41. SILDENAFIL CITRATE [Concomitant]
     Active Substance: SILDENAFIL CITRATE
  42. BOSENTAN [Concomitant]
     Active Substance: BOSENTAN
  43. BOSENTAN [Concomitant]
     Active Substance: BOSENTAN
  44. POTASSIUM CHLORIDE [Concomitant]
     Active Substance: POTASSIUM CHLORIDE
  45. FOLIC ACID [Concomitant]
     Active Substance: FOLIC ACID
  46. IMODIUM [Concomitant]
     Active Substance: LOPERAMIDE HYDROCHLORIDE
  47. CALCIUM CITRATE [Concomitant]
     Active Substance: CALCIUM CITRATE
  48. VITAMIN D NOS [Concomitant]
     Active Substance: VITAMIN D NOS
  49. KLONOPIN [Concomitant]
     Active Substance: CLONAZEPAM
  50. FLOLAN [Concomitant]
     Active Substance: EPOPROSTENOL SODIUM
  51. ZYRTEC [Concomitant]
     Active Substance: CETIRIZINE HYDROCHLORIDE
  52. PREVACID [Concomitant]
     Active Substance: LANSOPRAZOLE
  53. TRACLEER [Concomitant]
     Active Substance: BOSENTAN
  54. CANRENOATE POTASSIUM [Concomitant]
     Active Substance: CANRENOATE POTASSIUM
  55. VITAMIN B12 [Concomitant]
     Active Substance: CYANOCOBALAMIN
  56. OXYGEN [Concomitant]
     Active Substance: OXYGEN
  57. MAGNESIUM [Concomitant]
     Active Substance: MAGNESIUM
  58. CITRACAL PLUS D [Concomitant]
  59. TALTZ [Concomitant]
     Active Substance: IXEKIZUMAB
  60. MAGNESIUM OXIDE [Concomitant]
     Active Substance: MAGNESIUM OXIDE
  61. ZANAFLEX [Concomitant]
     Active Substance: TIZANIDINE HYDROCHLORIDE
  62. CELEXAL [Concomitant]
  63. PROTONEX [Concomitant]
  64. GABAPENTIN [Concomitant]
     Active Substance: GABAPENTIN
  65. DICYCLOMINE HYDROCHLORIDE [Concomitant]
     Active Substance: DICYCLOMINE HYDROCHLORIDE
  66. LEVOCETIRIZINE [Concomitant]
     Active Substance: LEVOCETIRIZINE
  67. MELATONIN [Concomitant]
     Active Substance: MELATONIN
  68. MONTELUKAST SODIUM [Concomitant]
     Active Substance: MONTELUKAST SODIUM
  69. RIBOFLAVIN [Concomitant]
     Active Substance: RIBOFLAVIN
  70. TORSEMIDE [Concomitant]
     Active Substance: TORSEMIDE
  71. TYLENOL [Concomitant]
     Active Substance: ACETAMINOPHEN
  72. VITAMIN B2 [Concomitant]
     Active Substance: RIBOFLAVIN
  73. ZOFRAN [Concomitant]
     Active Substance: ONDANSETRON HYDROCHLORIDE
  74. VITAMIN B12 [Concomitant]
     Active Substance: CYANOCOBALAMIN
  75. GABAPENTIN [Concomitant]
     Active Substance: GABAPENTIN
  76. SYNTHROID [Concomitant]
     Active Substance: LEVOTHYROXINE SODIUM

REACTIONS (7)
  - Syncope [Unknown]
  - Dyspnoea exertional [Recovered/Resolved]
  - Pallor [Recovered/Resolved]
  - Feeling abnormal [Unknown]
  - Blood potassium abnormal [Unknown]
  - Palpitations [Unknown]
  - Diarrhoea [Recovered/Resolved]

NARRATIVE: CASE EVENT DATE: 20220730
